FAERS Safety Report 10061754 (Version 1)
Quarter: 2014Q2

REPORT INFORMATION
  Report Type: Report from Study
  Country: DE (occurrence: DE)
  Receive Date: 20140407
  Receipt Date: 20140407
  Transmission Date: 20141212
  Serious: Yes (Hospitalization)
  Sender: FDA-Public Use
  Company Number: DE-BIOGENIDEC-2014BI030180

PATIENT
  Age: 49 Year
  Sex: Male

DRUGS (11)
  1. TYSABRI [Suspect]
     Indication: RELAPSING-REMITTING MULTIPLE SCLEROSIS
     Route: 042
     Dates: start: 20130104
  2. FAMPYRA [Concomitant]
     Indication: GAIT DISTURBANCE
     Dates: start: 20120424
  3. LYRICA [Concomitant]
     Indication: NEURALGIA
     Dates: start: 20120110
  4. GABAPENTIN [Concomitant]
     Indication: NEURALGIA
     Dates: start: 20110316
  5. TOLPERISON [Concomitant]
     Indication: MUSCLE SPASTICITY
     Dates: start: 20120619
  6. SATIVEX [Concomitant]
     Indication: MUSCLE SPASTICITY
     Dates: start: 20130201
  7. BISOPROLOL [Concomitant]
     Indication: CARDIOMYOPATHY
     Dates: start: 20110818
  8. VALSARTAN [Concomitant]
     Indication: CARDIOMYOPATHY
     Dates: start: 20120620
  9. TOVIAZ [Concomitant]
     Indication: URINARY INCONTINENCE
     Dates: start: 20130703
  10. QUETIAPIN [Concomitant]
     Indication: PARANOIA
     Dates: start: 20130325
  11. L THYROXIN [Concomitant]
     Indication: HYPOTHYROIDISM
     Dates: start: 20101013

REACTIONS (1)
  - Neuralgia [Recovered/Resolved]
